FAERS Safety Report 5069654-3 (Version None)
Quarter: 2006Q3

REPORT INFORMATION
  Report Type: 
  Country: None (occurrence: None)
  Receive Date: 20060802
  Receipt Date: 20060802
  Transmission Date: 20061208
  Serious: Yes (Other)
  Sender: FDA-Public Use
  Company Number: None

PATIENT
  Age: 19 Year
  Sex: Female
  Weight: 61.2356 kg

DRUGS (2)
  1. METHOTREXATE [Suspect]
     Indication: ECTOPIC PREGNANCY
     Dosage: 3.70 ML X1 IM
     Route: 030
     Dates: start: 20060310, end: 20060310
  2. METHOTREXATE [Suspect]
     Indication: ECTOPIC PREGNANCY
     Dosage: 3.75 ML X1 IM
     Route: 030
     Dates: start: 20060317, end: 20060317

REACTIONS (21)
  - ABORTION SPONTANEOUS [None]
  - ASTHENIA [None]
  - ASTHMA [None]
  - CHEMICAL INJURY [None]
  - CONDITION AGGRAVATED [None]
  - COUGH [None]
  - DRUG TOXICITY [None]
  - HAEMATOCRIT DECREASED [None]
  - HAEMOGLOBIN DECREASED [None]
  - INFLUENZA [None]
  - INTERSTITIAL LUNG DISEASE [None]
  - LUNG CONSOLIDATION [None]
  - LUNG INFILTRATION [None]
  - MALAISE [None]
  - NAUSEA [None]
  - OFF LABEL USE [None]
  - PALLOR [None]
  - PNEUMONIA [None]
  - PULMONARY TOXICITY [None]
  - STOMATITIS [None]
  - VOMITING [None]
